FAERS Safety Report 16163022 (Version 5)
Quarter: 2019Q2

REPORT INFORMATION
  Report Type: Spontaneous
  Country: US (occurrence: US)
  Receive Date: 20190405
  Receipt Date: 20190522
  Transmission Date: 20190711
  Serious: No
  Sender: FDA-Public Use
  Company Number: US-PFIZER INC-2019147350

PATIENT
  Age: 62 Year
  Sex: Female
  Weight: 68.48 kg

DRUGS (2)
  1. ELETRIPTAN HBR [Suspect]
     Active Substance: ELETRIPTAN HYDROBROMIDE
     Indication: INTERVERTEBRAL DISC PROTRUSION
  2. ELETRIPTAN HBR [Suspect]
     Active Substance: ELETRIPTAN HYDROBROMIDE
     Indication: MIGRAINE
     Dosage: UNK
     Dates: start: 2018

REACTIONS (5)
  - Nausea [Unknown]
  - Anxiety [Unknown]
  - Drug ineffective [Unknown]
  - Rhinitis allergic [Unknown]
  - Epistaxis [Unknown]

NARRATIVE: CASE EVENT DATE: 2018
